FAERS Safety Report 17765580 (Version 1)
Quarter: 2020Q2

REPORT INFORMATION
  Report Type: Spontaneous
  Country: US (occurrence: US)
  Receive Date: 20200511
  Receipt Date: 20200511
  Transmission Date: 20200714
  Serious: Yes (Other)
  Sender: FDA-Public Use
  Company Number: US-SA-2020SA117453

PATIENT
  Sex: Female

DRUGS (2)
  1. AUBAGIO [Suspect]
     Active Substance: TERIFLUNOMIDE
     Indication: MULTIPLE SCLEROSIS
     Dosage: 14 MG, QD
     Route: 048
     Dates: start: 20200501
  2. LYRICA [Concomitant]
     Active Substance: PREGABALIN
     Route: 065

REACTIONS (7)
  - Hypoaesthesia [Unknown]
  - Vision blurred [Unknown]
  - Disorientation [Unknown]
  - White blood cell count decreased [Unknown]
  - JC virus infection [Unknown]
  - Head discomfort [Unknown]
  - Heart rate increased [Unknown]

NARRATIVE: CASE EVENT DATE: 20200504
